FAERS Safety Report 7323039-5 (Version None)
Quarter: 2011Q1

REPORT INFORMATION
  Report Type: 
  Country: None (occurrence: None)
  Receive Date: 20110301
  Receipt Date: 20110301
  Transmission Date: 20110831
  Serious: Yes (Hospitalization)
  Sender: FDA-Public Use
  Company Number: PHHO2008FR06171

PATIENT
  Sex: Male
  Weight: 62 kg

DRUGS (9)
  1. PLACEBO [Suspect]
     Dosage: 5 MG DAILY
     Route: 048
     Dates: start: 20080603, end: 20080603
  2. SANDOSTATIN LAR [Suspect]
     Indication: CARCINOID TUMOUR
     Dosage: 400 UG/DAILY
     Route: 058
     Dates: start: 20080513, end: 20080513
  3. PLACEBO [Suspect]
     Indication: CARCINOID TUMOUR
     Dosage: PLACEBO
     Route: 048
     Dates: start: 20070613, end: 20080523
  4. PLACEBO [Suspect]
     Dosage: 10 MG DAILY
     Route: 048
     Dates: start: 20080708, end: 20080810
  5. SANDOSTATIN LAR [Suspect]
     Dosage: 300 UG, DAILY
     Route: 058
     Dates: start: 20080719, end: 20080726
  6. PLACEBO [Suspect]
     Dosage: 10 MG DAILY
     Route: 048
     Dates: start: 20080604, end: 20080701
  7. PLACEBO [Suspect]
     Dosage: 5 MG DAILY
     Route: 048
     Dates: start: 20081003
  8. PLACEBO [Suspect]
     Dosage: 5 MG DAILY
     Route: 048
     Dates: start: 20080827, end: 20080905
  9. PLACEBO [Suspect]
     Dosage: 5 MG DAILY
     Route: 048
     Dates: start: 20080918, end: 20080920

REACTIONS (1)
  - NEOPLASM MALIGNANT [None]
